FAERS Safety Report 11068032 (Version 2)
Quarter: 2015Q2

REPORT INFORMATION
  Report Type: Spontaneous
  Country: AU (occurrence: AU)
  Receive Date: 20150427
  Receipt Date: 20150605
  Transmission Date: 20150821
  Serious: Yes (Death, Hospitalization, Other)
  Sender: FDA-Public Use
  Company Number: AU-AMGEN-AUSSP2015039934

PATIENT
  Age: 84 Year
  Sex: Male

DRUGS (17)
  1. XGEVA [Suspect]
     Active Substance: DENOSUMAB
     Indication: PROSTATE CANCER METASTATIC
     Dosage: 120 MG, QMO
     Route: 058
     Dates: start: 20150211
  2. MOVICOL [Concomitant]
     Active Substance: POLYETHYLENE GLYCOL 3350\POTASSIUM CHLORIDE\SODIUM BICARBONATE\SODIUM CHLORIDE
     Dosage: UNK UNK, AS NECESSARY
  3. SENNA [Concomitant]
     Active Substance: SENNA LEAF\SENNOSIDES\SENNOSIDES A AND B
     Dosage: UNK UNK, AS NECESSARY
  4. RAMIPRIL. [Concomitant]
     Active Substance: RAMIPRIL
     Dosage: 10 MG, UNK
  5. OMEPRAZOLE. [Concomitant]
     Active Substance: OMEPRAZOLE
     Dosage: 20 MG, UNK
  6. CALCIUM CARBONATE AND VITAMIN D [Concomitant]
     Dosage: 500MG/10MCG, QD
  7. PREDNISONE. [Concomitant]
     Active Substance: PREDNISONE
     Dosage: 4 MG, UNK
  8. B12                                /00056201/ [Concomitant]
     Dosage: 1 MG, QMO
  9. ASPIRIN                            /00002701/ [Concomitant]
     Active Substance: ASPIRIN
     Dosage: 100 MG, UNK
  10. COLOXYL                            /00061602/ [Concomitant]
     Dosage: UNK UNK, AS NECESSARY
  11. ENZALUTAMIDE [Concomitant]
     Active Substance: ENZALUTAMIDE
     Dosage: 160 MG, UNK
     Route: 048
  12. PARACETAMOL [Concomitant]
     Active Substance: ACETAMINOPHEN
     Dosage: 665 MG, TID
  13. NORSPAN [Concomitant]
     Active Substance: BUPRENORPHINE
     Dosage: 15 MUG, QWK
  14. GOSERELIN [Concomitant]
     Active Substance: GOSERELIN
     Dosage: 10.8 MG, Q3MO
     Route: 058
  15. CADUET [Concomitant]
     Active Substance: AMLODIPINE BESYLATE\ATORVASTATIN CALCIUM
     Dosage: 10/80, UNK
  16. OXYCODONE [Concomitant]
     Active Substance: OXYCODONE
     Dosage: 5 MG, AS NECESSARY
  17. METOCLOPRAMIDE. [Concomitant]
     Active Substance: METOCLOPRAMIDE
     Dosage: 10 MG, UNK

REACTIONS (3)
  - Hypocalcaemia [Unknown]
  - Prostate cancer metastatic [Fatal]
  - Ileus [Unknown]

NARRATIVE: CASE EVENT DATE: 20150215
